FAERS Safety Report 9678414 (Version 2)
Quarter: 2014Q2

REPORT INFORMATION
  Report Type: Spontaneous
  Country: DK (occurrence: DK)
  Receive Date: 20131108
  Receipt Date: 20140623
  Transmission Date: 20141212
  Serious: Yes (Death)
  Sender: FDA-Public Use
  Company Number: DK-B.I. PHARMACEUTICALS,INC./RIDGEFIELD-2013-BI-36255DB

PATIENT
  Age: 77 Year
  Sex: Male
  Weight: 76 kg

DRUGS (9)
  1. PRADAXA [Suspect]
     Indication: ANTICOAGULATION DRUG LEVEL THERAPEUTIC
     Dosage: 300 MG
     Route: 048
     Dates: start: 20131012
  2. CORDARONE [Concomitant]
     Indication: ATRIAL FIBRILLATION
     Route: 065
     Dates: start: 20131012
  3. DIURAL [Concomitant]
     Indication: DIURETIC THERAPY
     Route: 065
     Dates: start: 20131012
  4. SPIRON [Concomitant]
     Indication: DIURETIC THERAPY
     Route: 065
     Dates: start: 20131012
  5. LOSARTAN BLUEFISH [Concomitant]
     Indication: HYPERTENSION
     Route: 065
     Dates: start: 20131012
  6. BURANA [Concomitant]
     Indication: ANALGESIC THERAPY
     Route: 065
  7. PINEX [Concomitant]
     Indication: ANALGESIC THERAPY
     Route: 065
  8. DELEPSINE [Concomitant]
     Indication: EPILEPSY
     Route: 065
  9. FERROUS FUMARATE [Concomitant]
     Indication: ANAEMIA
     Route: 065

REACTIONS (7)
  - Cerebral haemorrhage [Fatal]
  - Malaise [Fatal]
  - Loss of consciousness [Fatal]
  - Pupils unequal [Fatal]
  - Endotracheal intubation [Fatal]
  - Extensor plantar response [Fatal]
  - Syncope [Fatal]
